FAERS Safety Report 22962925 (Version 3)
Quarter: 2023Q4

REPORT INFORMATION
  Report Type: Spontaneous
  Country: JP (occurrence: JP)
  Receive Date: 20230920
  Receipt Date: 20231204
  Transmission Date: 20240109
  Serious: Yes (Death)
  Sender: FDA-Public Use
  Company Number: JP-PFIZER INC-PV202300158049

PATIENT
  Age: 7 Month
  Sex: Female

DRUGS (2)
  1. SIROLIMUS [Suspect]
     Active Substance: SIROLIMUS
     Indication: Lymphangioma
     Dosage: UNK
     Route: 048
     Dates: start: 20230207, end: 202303
  2. SIROLIMUS [Suspect]
     Active Substance: SIROLIMUS
     Dosage: UNK
     Route: 048
     Dates: start: 202304, end: 20230820

REACTIONS (2)
  - Lymphangioma [Fatal]
  - Disease progression [Fatal]

NARRATIVE: CASE EVENT DATE: 20230820
